FAERS Safety Report 4792094-9 (Version None)
Quarter: 2005Q4

REPORT INFORMATION
  Report Type: 
  Country: None (occurrence: None)
  Receive Date: 20051007
  Receipt Date: 20050902
  Transmission Date: 20060501
  Serious: Yes (Hospitalization)
  Sender: FDA-Public Use
  Company Number: PH-MERCK-0509PHL00002

PATIENT
  Age: 65 Year
  Sex: Female

DRUGS (7)
  1. ENALAPRIL MALEATE [Concomitant]
     Indication: HYPERTENSION
     Route: 048
     Dates: start: 20050808, end: 20050824
  2. ENALAPRIL MALEATE [Concomitant]
     Route: 048
     Dates: start: 20050824
  3. DILTIAZEM HYDROCHLORIDE [Concomitant]
     Indication: HYPERTENSION
     Route: 048
     Dates: start: 20050808
  4. GLYBURIDE AND METFORMIN HYDROCHLORIDE [Concomitant]
     Indication: DIABETES MELLITUS
     Route: 048
     Dates: start: 20050824
  5. NITROFURANTOIN [Concomitant]
     Indication: URINARY TRACT INFECTION
     Route: 048
     Dates: start: 20050806
  6. ZOCOR [Suspect]
     Indication: BLOOD CHOLESTEROL INCREASED
     Route: 048
     Dates: start: 20050806, end: 20050827
  7. ANETHOLE AND BORNEOL AND CAMPHENE AND EUCALYPTOL AND FENCHONE AND PINE [Concomitant]
     Indication: NEPHROLITHIASIS
     Route: 048
     Dates: start: 20050806

REACTIONS (4)
  - BLOOD CREATININE INCREASED [None]
  - BLOOD GLUCOSE INCREASED [None]
  - MEDICATION ERROR [None]
  - RHABDOMYOLYSIS [None]
